FAERS Safety Report 5951082-7 (Version None)
Quarter: 2008Q4

REPORT INFORMATION
  Report Type: 
  Country: None (occurrence: None)
  Receive Date: 20081111
  Receipt Date: 20081111
  Transmission Date: 20090506
  Serious: Yes (Hospitalization)
  Sender: FDA-Public Use
  Company Number: None

PATIENT
  Sex: Male

DRUGS (9)
  1. GMCSF [Suspect]
     Indication: PROSTATE CANCER
     Dosage: 250MG/M2 QD X 14 DAYS AND OFF OF 14 DAYS SQ
     Route: 058
     Dates: start: 20080728
  2. GMCSF [Suspect]
     Indication: PROSTATE CANCER
     Dosage: 250MG/M2 QD X 14 DAYS AND OFF OF 14 DAYS SQ
     Route: 058
     Dates: start: 20080811
  3. GMCSF [Suspect]
     Indication: PROSTATE CANCER
     Dosage: 250MG/M2 QD X 14 DAYS AND OFF OF 14 DAYS SQ
     Route: 058
     Dates: start: 20081010
  4. LUPRON [Concomitant]
  5. NEXIUM [Concomitant]
  6. M.V.I. [Concomitant]
  7. ALLOPURINOL [Concomitant]
  8. CALCIUM SUPPLEMENT [Concomitant]
  9. FLOMAX [Concomitant]

REACTIONS (1)
  - INTESTINAL OBSTRUCTION [None]
